FAERS Safety Report 6849812-5 (Version None)
Quarter: 2010Q3

REPORT INFORMATION
  Report Type: 
  Country: None (occurrence: None)
  Receive Date: 20100716
  Receipt Date: 20071106
  Transmission Date: 20110219
  Serious: No
  Sender: FDA-Public Use
  Company Number: US-PFIZER INC-2007083844

PATIENT
  Sex: Female
  Weight: 56.7 kg

DRUGS (4)
  1. CHANTIX [Suspect]
     Indication: SMOKING CESSATION THERAPY
     Dates: start: 20070921, end: 20071004
  2. ALL OTHER THERAPEUTIC PRODUCTS [Interacting]
  3. ADDERALL 10 [Concomitant]
  4. CLONAZEPAM [Concomitant]
     Indication: ANXIETY

REACTIONS (10)
  - ABNORMAL DREAMS [None]
  - ANXIETY [None]
  - DEPRESSED MOOD [None]
  - DRUG DOSE OMISSION [None]
  - DRUG INTERACTION [None]
  - DYSARTHRIA [None]
  - FEELING DRUNK [None]
  - IMPAIRED DRIVING ABILITY [None]
  - SLEEP DISORDER [None]
  - VISION BLURRED [None]
